FAERS Safety Report 10983877 (Version 1)
Quarter: 2015Q2

REPORT INFORMATION
  Report Type: Spontaneous
  Country: FR (occurrence: None)
  Receive Date: 20150401
  Receipt Date: 20150401
  Transmission Date: 20150821
  Serious: Yes (Life-Threatening, Hospitalization)
  Sender: FDA-Public Use
  Company Number: NSR_02015_2015

PATIENT
  Age: 5 Year
  Sex: Male
  Weight: 21 kg

DRUGS (1)
  1. TRAMADOL (TRAMADOL) [Suspect]
     Active Substance: TRAMADOL
     Indication: PAIN
     Dosage: 1 DOSE (8 DROPS, ABOUT 1 MG/.KG^-1) ORAL)
     Route: 048

REACTIONS (5)
  - Blood pH decreased [None]
  - Apnoea [None]
  - Coma [None]
  - Toxicity to various agents [None]
  - Respiratory depression [None]
